FAERS Safety Report 6360964-6 (Version None)
Quarter: 2009Q3

REPORT INFORMATION
  Report Type: 
  Country: None (occurrence: None)
  Receive Date: 20090916
  Receipt Date: 20090916
  Transmission Date: 20100115
  Serious: Yes (Disabling, Other)
  Sender: FDA-Public Use
  Company Number: None

PATIENT
  Age: 42 Year
  Sex: Female
  Weight: 68.2 kg

DRUGS (1)
  1. CIPROFLOXACIN [Suspect]
     Indication: GASTROINTESTINAL INFECTION
     Dosage: 500 MG 2X/DAY ORAL 08/31/2009, 7:30PM
     Route: 048
     Dates: start: 20090831

REACTIONS (17)
  - ABASIA [None]
  - ACTIVITIES OF DAILY LIVING IMPAIRED [None]
  - ARTHRALGIA [None]
  - DIZZINESS [None]
  - DRY MOUTH [None]
  - DYSGEUSIA [None]
  - DYSSTASIA [None]
  - HEADACHE [None]
  - IMPAIRED WORK ABILITY [None]
  - JOINT CREPITATION [None]
  - MUSCULOSKELETAL PAIN [None]
  - NEURALGIA [None]
  - PAIN [None]
  - PARAESTHESIA ORAL [None]
  - PYREXIA [None]
  - RHINORRHOEA [None]
  - TINNITUS [None]
